FAERS Safety Report 19144037 (Version 1)
Quarter: 2021Q2

REPORT INFORMATION
  Report Type: Other
  Country: IT (occurrence: IT)
  Receive Date: 20210416
  Receipt Date: 20210416
  Transmission Date: 20210717
  Serious: Yes (Other)
  Sender: FDA-Public Use
  Company Number: IT-ROCHE-2802868

PATIENT
  Age: 20 Year
  Sex: Male

DRUGS (5)
  1. EN [Suspect]
     Active Substance: DELORAZEPAM
     Indication: DRUG ABUSE
     Route: 048
     Dates: start: 20201210, end: 20201210
  2. ABILIFY [Concomitant]
     Active Substance: ARIPIPRAZOLE
     Route: 048
  3. TALOFEN [Suspect]
     Active Substance: PROMAZINE HYDROCHLORIDE
     Indication: DRUG ABUSE
     Route: 048
     Dates: start: 20201210, end: 20201210
  4. CLONAZEPAM. [Suspect]
     Active Substance: CLONAZEPAM
     Indication: DRUG ABUSE
     Route: 048
     Dates: start: 20201210, end: 20201210
  5. EFEXOR [Concomitant]
     Active Substance: VENLAFAXINE HYDROCHLORIDE
     Route: 048

REACTIONS (2)
  - Sopor [Recovering/Resolving]
  - Diarrhoea [Recovering/Resolving]

NARRATIVE: CASE EVENT DATE: 20201211
